FAERS Safety Report 9594657 (Version 1)
Quarter: 2013Q3

REPORT INFORMATION
  Report Type: Spontaneous
  Country: US (occurrence: None)
  Receive Date: 20130927
  Receipt Date: 20130927
  Transmission Date: 20140515
  Serious: Yes (Hospitalization)
  Sender: FDA-Public Use
  Company Number: RB-56197-2013

PATIENT
  Age: 14 Month
  Sex: Male

DRUGS (1)
  1. SUBOXONE [Suspect]
     Indication: ACCIDENTAL EXPOSURE TO PRODUCT
     Dates: start: 20130701, end: 20130701

REACTIONS (1)
  - Accidental exposure to product [None]
